FAERS Safety Report 10989979 (Version 1)
Quarter: 2015Q2

REPORT INFORMATION
  Report Type: Spontaneous
  Country: US (occurrence: US)
  Receive Date: 20150406
  Receipt Date: 20150406
  Transmission Date: 20150821
  Serious: Yes (Other)
  Sender: FDA-Public Use
  Company Number: US-SA-2015SA040956

PATIENT
  Age: 82 Year
  Sex: Female

DRUGS (1)
  1. ALLEGRA [Suspect]
     Active Substance: FEXOFENADINE HYDROCHLORIDE
     Route: 048

REACTIONS (16)
  - Diverticulitis [Unknown]
  - Pain [Unknown]
  - Dry mouth [Unknown]
  - Vertigo [Unknown]
  - Confusional state [Unknown]
  - Fatigue [Unknown]
  - Dyspnoea [Unknown]
  - Hypertension [Unknown]
  - Movement disorder [Unknown]
  - Somnolence [Unknown]
  - Insomnia [Unknown]
  - Feeling abnormal [Unknown]
  - Sleep talking [Unknown]
  - Dehydration [Unknown]
  - Depression [Unknown]
  - Nervousness [Unknown]

NARRATIVE: CASE EVENT DATE: 20150327
